FAERS Safety Report 5481408-2 (Version None)
Quarter: 2007Q4

REPORT INFORMATION
  Report Type: 
  Country: None (occurrence: None)
  Receive Date: 20071010
  Receipt Date: 20071005
  Transmission Date: 20080405
  Serious: Yes (Other)
  Sender: FDA-Public Use
  Company Number: A0686369A

PATIENT
  Age: 2 Year
  Sex: Female

DRUGS (5)
  1. LAMICTAL [Suspect]
     Dosage: 125MG TWICE PER DAY
     Route: 048
  2. KEPPRA [Concomitant]
  3. CLORAZEPATE [Concomitant]
  4. TOPAMAX [Concomitant]
  5. PREVACID [Concomitant]

REACTIONS (1)
  - MITOCHONDRIAL CYTOPATHY [None]
